FAERS Safety Report 18540171 (Version 1)
Quarter: 2020Q4

REPORT INFORMATION
  Report Type: Spontaneous
  Country: BG (occurrence: BG)
  Receive Date: 20201124
  Receipt Date: 20201124
  Transmission Date: 20210114
  Serious: Yes (Death)
  Sender: FDA-Public Use
  Company Number: BG-ROCHE-2719474

PATIENT
  Age: 52 Year
  Sex: Male

DRUGS (1)
  1. XOLAIR [Suspect]
     Active Substance: OMALIZUMAB
     Indication: ASTHMA
     Dosage: (6 VIALS COURSE OF TREATMENT WERE PRESCRIBED; THE MEDICATION WAS STOPPED AFTER ADMINISTRATION OF
     Route: 065
     Dates: start: 20171016, end: 201711

REACTIONS (3)
  - Eosinophilic granulomatosis with polyangiitis [Fatal]
  - Autoimmune disorder [Fatal]
  - Urticaria [Fatal]
